FAERS Safety Report 12001505 (Version 5)
Quarter: 2017Q1

REPORT INFORMATION
  Report Type: Spontaneous
  Country: US (occurrence: US)
  Receive Date: 20160204
  Receipt Date: 20170202
  Transmission Date: 20170428
  Serious: Yes (Other)
  Sender: FDA-Public Use
  Company Number: US-GLAXOSMITHKLINE-US2016012961

PATIENT
  Age: 8 Year
  Sex: Male
  Weight: 60 kg

DRUGS (3)
  1. TUMS [Suspect]
     Active Substance: CALCIUM CARBONATE
     Dosage: UNK
  2. ZYRTEC [Concomitant]
     Active Substance: CETIRIZINE HYDROCHLORIDE
     Indication: SEASONAL ALLERGY
     Dosage: UNK
  3. TUMS [Suspect]
     Active Substance: CALCIUM CARBONATE
     Indication: ABDOMINAL DISCOMFORT
     Dosage: UNK
     Dates: start: 20160128, end: 20160128

REACTIONS (6)
  - Anaphylactic shock [Recovered/Resolved]
  - Product quality issue [Unknown]
  - Swollen tongue [Unknown]
  - Chest discomfort [Unknown]
  - Dysphagia [Unknown]
  - Paraesthesia oral [Unknown]

NARRATIVE: CASE EVENT DATE: 20160128
